FAERS Safety Report 7941135-6 (Version None)
Quarter: 2011Q4

REPORT INFORMATION
  Report Type: 
  Country: None (occurrence: None)
  Receive Date: 20111128
  Receipt Date: 20111116
  Transmission Date: 20120403
  Serious: Yes (Other)
  Sender: FDA-Public Use
  Company Number: GB-JNJFOC-20111108151

PATIENT
  Age: 18 Year
  Sex: Female

DRUGS (2)
  1. NORGESTIMATE AND ETHINYL ESTRADIOL [Suspect]
     Indication: PROPHYLAXIS
     Route: 048
     Dates: start: 20110520, end: 20111010
  2. NORGESTIMATE AND ETHINYL ESTRADIOL [Suspect]
     Indication: CONTRACEPTION
     Route: 048
     Dates: start: 20110520, end: 20111010

REACTIONS (6)
  - DYSPHAGIA [None]
  - OFF LABEL USE [None]
  - PARAESTHESIA [None]
  - ABDOMINAL PAIN LOWER [None]
  - INCONTINENCE [None]
  - MICTURITION DISORDER [None]
